FAERS Safety Report 13385797 (Version 1)
Quarter: 2017Q1

REPORT INFORMATION
  Report Type: Spontaneous
  Country: US (occurrence: US)
  Receive Date: 20170330
  Receipt Date: 20170330
  Transmission Date: 20170429
  Serious: Yes (Other)
  Sender: FDA-Public Use
  Company Number: US-PFIZER INC-2017134925

PATIENT
  Age: 79 Year
  Sex: Female
  Weight: 90.72 kg

DRUGS (2)
  1. TRINITRINE [Concomitant]
     Active Substance: NITROGLYCERIN
     Indication: BLOOD PRESSURE MEASUREMENT
     Dosage: UNK
     Dates: start: 1998
  2. CELEBREX [Suspect]
     Active Substance: CELECOXIB
     Indication: ARTHRITIS
     Dosage: 200 MG, UNK
     Route: 048
     Dates: start: 2000

REACTIONS (2)
  - Breast cancer [Unknown]
  - Back pain [Unknown]

NARRATIVE: CASE EVENT DATE: 2011
